FAERS Safety Report 5748887-4 (Version None)
Quarter: 2008Q2

REPORT INFORMATION
  Report Type: 
  Country: None (occurrence: None)
  Receive Date: 20080522
  Receipt Date: 20080506
  Transmission Date: 20081010
  Serious: Yes (Death)
  Sender: FDA-Public Use
  Company Number: B0521277A

PATIENT
  Age: 25 Year
  Sex: Female

DRUGS (1)
  1. LAMOTRIGINE [Suspect]
     Indication: COMPLEX PARTIAL SEIZURES

REACTIONS (4)
  - ARRHYTHMIA [None]
  - GENE MUTATION [None]
  - LONG QT SYNDROME [None]
  - SUDDEN UNEXPLAINED DEATH IN EPILEPSY [None]
